FAERS Safety Report 7311226-1 (Version None)
Quarter: 2011Q1

REPORT INFORMATION
  Report Type: 
  Country: None (occurrence: None)
  Receive Date: 20110224
  Receipt Date: 20110210
  Transmission Date: 20110831
  Serious: No
  Sender: FDA-Public Use
  Company Number: JP-ROCHE-761247

PATIENT
  Age: 60 Year
  Sex: Female

DRUGS (4)
  1. MUCOSOLVAN [Concomitant]
     Route: 048
  2. TAMIFLU [Suspect]
     Dosage: FORMULA IN ABOUT 2010 UNCERTAIN DOSAGE.
     Route: 048
  3. TAMIFLU [Suspect]
     Route: 048
     Dates: start: 20110208, end: 20110210
  4. CLARITH [Concomitant]
     Dosage: 2 DF 2 OR 3/DAY.
     Route: 048

REACTIONS (1)
  - OVERDOSE [None]
